FAERS Safety Report 14855530 (Version 1)
Quarter: 2018Q2

REPORT INFORMATION
  Report Type: Spontaneous
  Country: US (occurrence: US)
  Receive Date: 20180507
  Receipt Date: 20180507
  Transmission Date: 20180711
  Serious: No
  Sender: FDA-Public Use
  Company Number: US-ROCHE-1986478

PATIENT
  Sex: Female
  Weight: 81.72 kg

DRUGS (3)
  1. ESBRIET [Suspect]
     Active Substance: PIRFENIDONE
     Dosage: 2 PILLS 3X A DAY; ONGOING: NO
     Route: 065
  2. ESBRIET [Suspect]
     Active Substance: PIRFENIDONE
     Indication: IDIOPATHIC PULMONARY FIBROSIS
     Dosage: ONE PILL 3X A DAY; ONGOING: NO
     Route: 065
  3. ESBRIET [Suspect]
     Active Substance: PIRFENIDONE
     Dosage: 3 PILLS 3X A DAY; ONGOING: NO
     Route: 065

REACTIONS (2)
  - Feeling abnormal [Unknown]
  - Arthropathy [Recovered/Resolved]
